FAERS Safety Report 17717702 (Version 1)
Quarter: 2020Q2

REPORT INFORMATION
  Report Type: Spontaneous
  Country: US (occurrence: US)
  Receive Date: 20200428
  Receipt Date: 20200428
  Transmission Date: 20200714
  Serious: No
  Sender: FDA-Public Use
  Company Number: US-VERTEX PHARMACEUTICALS-2020-009353

PATIENT
  Sex: Female
  Weight: 50 kg

DRUGS (1)
  1. TRIKAFTA [Suspect]
     Active Substance: ELEXACAFTOR\IVACAFTOR\TEZACAFTOR
     Indication: CYSTIC FIBROSIS
     Dosage: 2 ORANGE TAB (100MG ELEXACAFTOR/50MG TEZACAFTOR/75MG IVACAFTOR) AM ; 1 BLUE TAB (150MG IVACAFTOR) PM
     Route: 048
     Dates: start: 20200413

REACTIONS (1)
  - Abdominal pain upper [Unknown]
